FAERS Safety Report 15794953 (Version 1)
Quarter: 2019Q1

REPORT INFORMATION
  Report Type: Spontaneous
  Country: CN (occurrence: CN)
  Receive Date: 20190107
  Receipt Date: 20190107
  Transmission Date: 20190417
  Serious: Yes (Life-Threatening, Other)
  Sender: FDA-Public Use
  Company Number: CN-PURDUE-GBR-2018-0062901

PATIENT
  Age: 73 Year
  Sex: Female
  Weight: 41 kg

DRUGS (1)
  1. OXYCODONE HYDROCHLORIDE. [Suspect]
     Active Substance: OXYCODONE HYDROCHLORIDE
     Indication: CANCER PAIN
     Dosage: 10 MG, BID
     Route: 048
     Dates: start: 20181115, end: 20181115

REACTIONS (5)
  - Cold sweat [Unknown]
  - Miosis [Recovering/Resolving]
  - Blood pressure decreased [Recovering/Resolving]
  - Unresponsive to stimuli [Recovered/Resolved]
  - Breakthrough pain [Unknown]

NARRATIVE: CASE EVENT DATE: 20181115
